FAERS Safety Report 24560849 (Version 1)
Quarter: 2024Q4

REPORT INFORMATION
  Report Type: Spontaneous
  Country: NO (occurrence: NO)
  Receive Date: 20241029
  Receipt Date: 20241029
  Transmission Date: 20250114
  Serious: Yes (Other)
  Sender: PFIZER
  Company Number: None

PATIENT
  Age: 26 Year
  Sex: Female

DRUGS (2)
  1. PROVERA [Suspect]
     Active Substance: MEDROXYPROGESTERONE ACETATE
     Indication: Menopausal symptoms
     Dosage: 10 MG ONCE DAILY FOR TEN DAYS EVERY THIRD MONTH.
     Route: 048
     Dates: start: 202303, end: 202403
  2. CETIRIZIN MYLAN [Concomitant]
     Indication: Hypersensitivity
     Dosage: 10 MG, 1X/DAY
     Dates: start: 2012

REACTIONS (5)
  - Suicidal ideation [Recovered/Resolved]
  - Weight increased [Recovered/Resolved]
  - Depression [Recovered/Resolved]
  - Anxiety [Recovered/Resolved]
  - Off label use [Unknown]

NARRATIVE: CASE EVENT DATE: 20230301
